FAERS Safety Report 6556359-2 (Version None)
Quarter: 2010Q1

REPORT INFORMATION
  Report Type: 
  Country: None (occurrence: None)
  Receive Date: 20100128
  Receipt Date: 20100120
  Transmission Date: 20100710
  Serious: Yes (Other)
  Sender: FDA-Public Use
  Company Number: US-BAXTER-2010BH001356

PATIENT
  Sex: Female

DRUGS (4)
  1. GAMMAGARD LIQUID [Suspect]
     Indication: DRUG USE FOR UNKNOWN INDICATION
     Route: 065
     Dates: start: 20090701, end: 20090701
  2. DIPHENHYDRAMINE HYDROCHLORIDE [Concomitant]
     Indication: PREMEDICATION
     Route: 042
  3. SOLU-MEDROL [Concomitant]
     Indication: PREMEDICATION
     Route: 042
  4. CORTICOSTEROID NOS [Concomitant]
     Route: 048

REACTIONS (7)
  - CHILLS [None]
  - HEADACHE [None]
  - MENINGITIS ASEPTIC [None]
  - NECK PAIN [None]
  - PYREXIA [None]
  - STATUS MIGRAINOSUS [None]
  - VISION BLURRED [None]
